FAERS Safety Report 22355530 (Version 1)
Quarter: 2023Q2

REPORT INFORMATION
  Report Type: Report from Study
  Country: US (occurrence: US)
  Receive Date: 20230523
  Receipt Date: 20230523
  Transmission Date: 20230721
  Serious: Yes (Other)
  Sender: FDA-Public Use
  Company Number: US-OTSUKA-2023_013002

PATIENT
  Age: 56 Year
  Sex: Female
  Weight: 76.2 kg

DRUGS (9)
  1. ARIPIPRAZOLE [Suspect]
     Active Substance: ARIPIPRAZOLE
     Indication: Product used for unknown indication
     Dosage: 400MG, ONCE A MONTH
     Route: 065
     Dates: start: 2021, end: 202302
  2. ARIPIPRAZOLE [Suspect]
     Active Substance: ARIPIPRAZOLE
     Indication: Product used for unknown indication
     Dosage: 20 MG, QD
     Route: 065
     Dates: start: 202302
  3. BACLOFEN [Suspect]
     Active Substance: BACLOFEN
     Indication: Insomnia
     Dosage: 20 MG
     Route: 065
     Dates: start: 20230504
  4. BACLOFEN [Suspect]
     Active Substance: BACLOFEN
     Indication: Muscle relaxant therapy
  5. MELOXICAM [Concomitant]
     Active Substance: MELOXICAM
     Indication: Antiinflammatory therapy
     Dosage: 15 MG, QD
     Route: 065
     Dates: start: 2023
  6. GALTAMIN [Concomitant]
     Indication: Amnesia
     Dosage: 8MG MORNING AND EVENING; 2X A DAY
     Route: 065
  7. WELLBUTRIN [Concomitant]
     Active Substance: BUPROPION HYDROCHLORIDE
     Indication: Depression
     Dosage: 300MG ONCE DAY
     Route: 065
     Dates: start: 2002
  8. LISINOPRIL [Concomitant]
     Active Substance: LISINOPRIL
     Indication: Cardiac disorder
     Dosage: 5 MG
     Route: 065
     Dates: start: 2021
  9. QUETIAPINE [Concomitant]
     Active Substance: QUETIAPINE
     Indication: Schizophrenia
     Dosage: 50MG TWO PILLS AT NIGHT AND ONE 25MG ONCE DAY AT NIGHT
     Route: 065

REACTIONS (6)
  - Hallucination [Not Recovered/Not Resolved]
  - Muscle twitching [Not Recovered/Not Resolved]
  - Tremor [Not Recovered/Not Resolved]
  - Weight increased [Not Recovered/Not Resolved]
  - Product dose omission issue [Unknown]
  - Drug ineffective [Unknown]

NARRATIVE: CASE EVENT DATE: 20230201
